FAERS Safety Report 8920489 (Version 2)
Quarter: 2013Q2

REPORT INFORMATION
  Report Type: Spontaneous
  Country: TR (occurrence: TR)
  Receive Date: 20121122
  Receipt Date: 20130503
  Transmission Date: 20140414
  Serious: Yes (Other)
  Sender: FDA-Public Use
  Company Number: PHHY2012TR104871

PATIENT
  Age: 42 Year
  Sex: Female

DRUGS (4)
  1. DOXORUBICIN [Suspect]
     Indication: BURKITT^S LYMPHOMA
  2. VINCRISTINE [Suspect]
     Indication: BURKITT^S LYMPHOMA
  3. CYCLOPHOSPHAMIDE [Suspect]
     Indication: BURKITT^S LYMPHOMA
  4. RITUXIMAB [Suspect]
     Indication: BURKITT^S LYMPHOMA

REACTIONS (3)
  - Gastric perforation [Recovered/Resolved]
  - Abdominal distension [Recovered/Resolved]
  - Abdominal pain [Recovered/Resolved]
